FAERS Safety Report 5031413-5 (Version None)
Quarter: 2006Q2

REPORT INFORMATION
  Report Type: 
  Country: None (occurrence: None)
  Receive Date: 20060621
  Receipt Date: 20050602
  Transmission Date: 20061013
  Serious: Yes (Death, Other)
  Sender: FDA-Public Use
  Company Number: US-MERCK-0506USA00548

PATIENT
  Sex: Female

DRUGS (1)
  1. FOSAMAX [Suspect]
     Route: 048

REACTIONS (2)
  - DEATH [None]
  - OSTEONECROSIS [None]
